FAERS Safety Report 5933311-9 (Version None)
Quarter: 2008Q4

REPORT INFORMATION
  Report Type: 
  Country: None (occurrence: None)
  Receive Date: 20081028
  Receipt Date: 20081016
  Transmission Date: 20090506
  Serious: Yes (Hospitalization, Other)
  Sender: FDA-Public Use
  Company Number: JP-PFIZER INC-2008084899

PATIENT
  Sex: Female

DRUGS (7)
  1. HALCION [Suspect]
     Indication: INSOMNIA
     Dosage: DAILY DOSE:.25MG-FREQ:QD
     Route: 048
  2. NOVAMIN [Concomitant]
  3. ARIMIDEX [Concomitant]
  4. LOXONIN [Concomitant]
  5. ZANTAC [Concomitant]
  6. PRIMPERAN [Concomitant]
  7. OXYCONTIN [Concomitant]

REACTIONS (2)
  - PORIOMANIA [None]
  - UNEVALUABLE EVENT [None]
